APPROVED DRUG PRODUCT: MORPHINE SULFATE
Active Ingredient: MORPHINE SULFATE
Strength: 100MG
Dosage Form/Route: TABLET, EXTENDED RELEASE;ORAL
Application: A075295 | Product #004
Applicant: STRIDES PHARMA INTERNATIONAL AG
Approved: Sep 15, 2000 | RLD: No | RS: No | Type: DISCN